FAERS Safety Report 7676792-5 (Version None)
Quarter: 2011Q3

REPORT INFORMATION
  Report Type: 
  Country: None (occurrence: None)
  Receive Date: 20110811
  Receipt Date: 20110808
  Transmission Date: 20111222
  Serious: Yes (Other)
  Sender: FDA-Public Use
  Company Number: JP-CEPHALON-US021058

PATIENT
  Sex: Female

DRUGS (3)
  1. METHYCOBAL [Concomitant]
     Indication: NEUROPATHY PERIPHERAL
     Route: 048
     Dates: start: 20061208, end: 20070626
  2. MODAFINIL [Suspect]
     Indication: NARCOLEPSY
     Route: 048
     Dates: start: 20070608, end: 20070721
  3. ZOLPIDEM [Concomitant]
     Indication: INSOMNIA
     Dosage: QD PRN
     Route: 048
     Dates: start: 20060227

REACTIONS (2)
  - ERYTHEMA MULTIFORME [None]
  - DERMATITIS ACNEIFORM [None]
